FAERS Safety Report 7178930-X (Version None)
Quarter: 2010Q4

REPORT INFORMATION
  Report Type: 
  Country: None (occurrence: None)
  Receive Date: 20101217
  Receipt Date: 20101217
  Transmission Date: 20110411
  Serious: Yes (Hospitalization)
  Sender: FDA-Public Use
  Company Number: None

PATIENT
  Sex: Female
  Weight: 62.8685 kg

DRUGS (2)
  1. LENALIDOMIDE [Suspect]
     Indication: ACUTE MYELOID LEUKAEMIA
     Dosage: 50 MG PO DAILY D1-28
     Route: 048
     Dates: start: 20101207
  2. AZACITIDINE [Suspect]
     Indication: ACUTE MYELOID LEUKAEMIA
     Dosage: 25 MG/M2 D1-D5
     Dates: start: 20101207, end: 20101212

REACTIONS (8)
  - ANXIETY [None]
  - ARRHYTHMIA [None]
  - DEPRESSION [None]
  - HYPOTENSION [None]
  - HYPOTHYROIDISM [None]
  - ORAL DISORDER [None]
  - PANCYTOPENIA [None]
  - PYREXIA [None]
